FAERS Safety Report 5404537-8 (Version None)
Quarter: 2007Q3

REPORT INFORMATION
  Report Type: 
  Country: None (occurrence: None)
  Receive Date: 20070802
  Receipt Date: 20070727
  Transmission Date: 20080115
  Serious: Yes (Hospitalization)
  Sender: FDA-Public Use
  Company Number: US-ROXANE LABORATORIES, INC-2007-BP-18208RO

PATIENT

DRUGS (1)
  1. AMLODIPINE [Suspect]
     Indication: OVERDOSE
     Dosage: 1000 MG X 1 DOSE
     Route: 048

REACTIONS (4)
  - BLOOD PRESSURE DECREASED [None]
  - BODY TEMPERATURE DECREASED [None]
  - OVERDOSE [None]
  - TEMPERATURE REGULATION DISORDER [None]
